FAERS Safety Report 6176280-1 (Version None)
Quarter: 2009Q2

REPORT INFORMATION
  Report Type: 
  Country: None (occurrence: None)
  Receive Date: 20090501
  Receipt Date: 20090417
  Transmission Date: 20091009
  Serious: Yes (Other)
  Sender: FDA-Public Use
  Company Number: B0572448A

PATIENT
  Sex: Female

DRUGS (1)
  1. CLENIL MODULITE [Suspect]
     Dosage: 200MCG PER DAY
     Route: 055
     Dates: start: 20090309

REACTIONS (4)
  - CHOKING [None]
  - DYSGEUSIA [None]
  - DYSPNOEA [None]
  - PAROSMIA [None]
